FAERS Safety Report 12716175 (Version 1)
Quarter: 2016Q3

REPORT INFORMATION
  Report Type: Report from Study
  Country: CA (occurrence: CA)
  Receive Date: 20160906
  Receipt Date: 20160906
  Transmission Date: 20161109
  Serious: Yes (Other)
  Sender: FDA-Public Use
  Company Number: PHHY2011CA67594

PATIENT
  Age: 56 Year
  Sex: Male

DRUGS (2)
  1. INSULIN [Concomitant]
     Active Substance: INSULIN NOS
     Indication: PRODUCT USED FOR UNKNOWN INDICATION
     Dosage: QD
     Route: 058
  2. SANDOSTATIN LAR DEPOT [Suspect]
     Active Substance: OCTREOTIDE ACETATE
     Indication: NEUROENDOCRINE CARCINOMA
     Dosage: 30 MG, QMO
     Route: 030
     Dates: start: 20080304

REACTIONS (10)
  - Device occlusion [Unknown]
  - Sudden hearing loss [Unknown]
  - Heart rate irregular [Unknown]
  - Injection site reaction [Recovering/Resolving]
  - Blood pressure increased [Unknown]
  - Injection site pain [Recovering/Resolving]
  - Heart rate increased [Unknown]
  - Injection site mass [Recovering/Resolving]
  - Abdominal distension [Unknown]
  - Pyrexia [Recovered/Resolved]

NARRATIVE: CASE EVENT DATE: 2016
